FAERS Safety Report 24959005 (Version 2)
Quarter: 2025Q2

REPORT INFORMATION
  Report Type: Report from Study
  Country: US (occurrence: US)
  Receive Date: 20250212
  Receipt Date: 20250609
  Transmission Date: 20250717
  Serious: Yes (Other)
  Sender: SUNOVION
  Company Number: US-SUMITOMO PHARMA SWITZERLAND GMBH-2025SPA001345

PATIENT

DRUGS (24)
  1. ORGOVYX [Suspect]
     Active Substance: RELUGOLIX
     Indication: Prostate cancer
     Dosage: 360 MG, SINGLE
     Route: 048
  2. ORGOVYX [Suspect]
     Active Substance: RELUGOLIX
     Dosage: 120 MG, QD
     Route: 048
  3. AMLODIPINE BESYLATE [Concomitant]
     Active Substance: AMLODIPINE BESYLATE
     Route: 065
  4. BETAMETHASONE DIPROPIONATE [Concomitant]
     Active Substance: BETAMETHASONE DIPROPIONATE
     Route: 065
  5. CEFDINIR [Concomitant]
     Active Substance: CEFDINIR
     Route: 065
  6. DICLOFENAC SODIUM [Concomitant]
     Active Substance: DICLOFENAC SODIUM
     Route: 065
  7. VITAMINS [Concomitant]
     Active Substance: VITAMINS
     Route: 065
  8. FERROUS SULFATE [Concomitant]
     Active Substance: FERROUS SULFATE
     Route: 048
  9. FINASTERIDE [Concomitant]
     Active Substance: FINASTERIDE
     Route: 065
  10. HYDROCHLOROTHIAZIDE [Concomitant]
     Active Substance: HYDROCHLOROTHIAZIDE
     Route: 065
  11. JULUCA [Concomitant]
     Active Substance: DOLUTEGRAVIR SODIUM\RILPIVIRINE HYDROCHLORIDE
     Route: 065
  12. MECLIZINE HYDROCHLORIDE [Concomitant]
     Active Substance: MECLIZINE HYDROCHLORIDE
     Route: 065
  13. NYSTATIN [Concomitant]
     Active Substance: NYSTATIN
     Route: 065
  14. OMEGA-3 ACIDS [Concomitant]
     Active Substance: OMEGA-3 FATTY ACIDS
     Route: 065
  15. PHENAZOPYRIDINE HCL [Concomitant]
     Active Substance: PHENAZOPYRIDINE HYDROCHLORIDE
     Route: 065
  16. SILDENAFIL CITRATE [Concomitant]
     Active Substance: SILDENAFIL CITRATE
     Route: 065
  17. VITAMIN B1 [Concomitant]
     Active Substance: THIAMINE HYDROCHLORIDE
     Route: 065
  18. TAMSULOSIN HYDROCHLORIDE [Concomitant]
     Active Substance: TAMSULOSIN HYDROCHLORIDE
     Route: 065
  19. TRAMADOL HCL [Concomitant]
     Active Substance: TRAMADOL HYDROCHLORIDE
     Route: 065
  20. TYLENOL [Concomitant]
     Active Substance: ACETAMINOPHEN
     Route: 065
  21. CEPHALEXIN [Concomitant]
     Active Substance: CEPHALEXIN
     Route: 065
  22. FISH OIL [Concomitant]
     Active Substance: FISH OIL
     Route: 065
  23. VITAMIN D3 [Concomitant]
     Active Substance: CHOLECALCIFEROL
     Route: 065
  24. Equate mucus relief severe congestion + cough [Concomitant]
     Route: 048

REACTIONS (4)
  - Therapeutic procedure [Unknown]
  - Skin injury [Unknown]
  - Skin infection [Unknown]
  - Drug ineffective [Unknown]
